FAERS Safety Report 5487473-0 (Version None)
Quarter: 2007Q4

REPORT INFORMATION
  Report Type: 
  Country: None (occurrence: None)
  Receive Date: 20071015
  Receipt Date: 20070928
  Transmission Date: 20080405
  Serious: Yes (Other)
  Sender: FDA-Public Use
  Company Number: DSU-2007-00691

PATIENT
  Age: 59 Year
  Sex: Male

DRUGS (3)
  1. OLMESARTAN MEDOXOMIL + HYDROCHLOROTHIAZIDE (HYDROCHLOROTHIAZIDE, OLMES [Suspect]
     Indication: HYPERTENSION
     Dosage: 20/12.5 MG (QD), PER ORAL
     Route: 048
     Dates: start: 20070503
  2. LIPITOR [Suspect]
     Indication: HYPERLIPIDAEMIA
     Dosage: 10 MG (10 MG, QD), PER ORAL
     Route: 048
     Dates: start: 20040927
  3. NPH INSULIN (INSULIN INJECTION, ISOPHANE) (INSULIN INJECTION, ISOPHANE [Concomitant]

REACTIONS (2)
  - HAEMODIALYSIS [None]
  - RENAL FAILURE CHRONIC [None]
